FAERS Safety Report 9603847 (Version 3)
Quarter: 2013Q4

REPORT INFORMATION
  Report Type: Spontaneous
  Country: DE (occurrence: DE)
  Receive Date: 20131008
  Receipt Date: 20131028
  Transmission Date: 20140711
  Serious: Yes (Other)
  Sender: FDA-Public Use
  Company Number: DE-ROCHE-1285623

PATIENT
  Age: 43 Year
  Sex: Male
  Weight: 74 kg

DRUGS (2)
  1. ZELBORAF [Suspect]
     Indication: METASTATIC MALIGNANT MELANOMA
     Route: 065
     Dates: start: 201307
  2. CIPRAMIL [Concomitant]
     Indication: DEPRESSION
     Route: 065
     Dates: start: 201308

REACTIONS (3)
  - Central nervous system haemorrhage [Recovering/Resolving]
  - Hemiplegia [Unknown]
  - Vascular rupture [Unknown]
